FAERS Safety Report 7917773-3 (Version None)
Quarter: 2011Q4

REPORT INFORMATION
  Report Type: 
  Country: None (occurrence: None)
  Receive Date: 20111116
  Receipt Date: 20110928
  Transmission Date: 20120403
  Serious: Yes (Hospitalization)
  Sender: FDA-Public Use
  Company Number: DE-ROCHE-1010566

PATIENT
  Sex: Male
  Weight: 74 kg

DRUGS (2)
  1. XELODA [Suspect]
     Indication: RECTAL CANCER
     Dosage: LAST DOSE 01/AUG/2011
     Route: 048
     Dates: start: 20110630
  2. OXALIPLATIN [Suspect]
     Indication: RECTAL CANCER
     Dosage: LAST DOSE 28/JUL/2011
     Route: 042
     Dates: start: 20110630

REACTIONS (2)
  - PELVIC ABSCESS [None]
  - ILEUS [None]
